FAERS Safety Report 24293536 (Version 1)
Quarter: 2024Q3

REPORT INFORMATION
  Report Type: Spontaneous
  Country: US (occurrence: None)
  Receive Date: 20240906
  Receipt Date: 20240906
  Transmission Date: 20241016
  Serious: No
  Sender: DOMPE FARMACEUTICI
  Company Number: US-FARMAPROD-202308-202401-0314

PATIENT
  Sex: Female
  Weight: 59.87 kg

DRUGS (27)
  1. OXERVATE [Suspect]
     Active Substance: CENEGERMIN-BKBJ
     Indication: Neurotrophic keratopathy
     Route: 047
     Dates: start: 20240124
  2. TYLENOL [Concomitant]
     Active Substance: ACETAMINOPHEN
  3. MELATONIN [Concomitant]
     Active Substance: MELATONIN
  4. CALCIUM [Concomitant]
     Active Substance: CALCIUM
     Dosage: 500(1250)
  5. BIOTIN [Concomitant]
     Active Substance: BIOTIN
  6. VITAMIN B12 [Concomitant]
     Active Substance: CYANOCOBALAMIN
  7. VITAMINS [Concomitant]
     Active Substance: VITAMINS
     Dosage: GUMMIES,
  8. AMANTADINE [Concomitant]
     Active Substance: AMANTADINE
  9. AZILECT [Concomitant]
     Active Substance: RASAGILINE MESYLATE
  10. ROPINIROLE HYDROCHLORIDE [Concomitant]
     Active Substance: ROPINIROLE HYDROCHLORIDE
  11. MOXIFLOXACIN [Concomitant]
     Active Substance: MOXIFLOXACIN
  12. SEROQUEL [Concomitant]
     Active Substance: QUETIAPINE FUMARATE
  13. AMLODIPINE BESYLATE [Concomitant]
     Active Substance: AMLODIPINE BESYLATE
  14. FINASTERIDE [Concomitant]
     Active Substance: FINASTERIDE
  15. SINEMET [Concomitant]
     Active Substance: CARBIDOPA\LEVODOPA
     Dosage: 25 MG-100 MG
  16. QUETIAPINE FUMARATE [Concomitant]
     Active Substance: QUETIAPINE FUMARATE
  17. LOSARTAN POTASSIUM [Concomitant]
     Active Substance: LOSARTAN POTASSIUM
  18. PROLIA [Concomitant]
     Active Substance: DENOSUMAB
     Dosage: SYRINGE
  19. KETOCONAZOLE [Concomitant]
     Active Substance: KETOCONAZOLE
  20. FLUTICASONE PROPIONATE [Concomitant]
     Active Substance: FLUTICASONE PROPIONATE
  21. CARBIDOPA\LEVODOPA [Concomitant]
     Active Substance: CARBIDOPA\LEVODOPA
     Dosage: 25MG-100MG
  22. RASAGILINE MESYLATE [Concomitant]
     Active Substance: RASAGILINE MESYLATE
  23. NORVASC [Concomitant]
     Active Substance: AMLODIPINE BESYLATE
  24. METOPROLOL SUCCINATE [Concomitant]
     Active Substance: METOPROLOL SUCCINATE
     Dosage: EXTENDED RELEASE 24H
  25. PREMARIN [Concomitant]
     Active Substance: ESTROGENS, CONJUGATED
     Dosage: CREAM WITH APPLICATOR
  26. XIIDRA [Concomitant]
     Active Substance: LIFITEGRAST
  27. COZAAR [Concomitant]
     Active Substance: LOSARTAN POTASSIUM

REACTIONS (4)
  - Wrong technique in product usage process [Unknown]
  - Eyelid pain [Recovering/Resolving]
  - Photophobia [Unknown]
  - Product use complaint [Unknown]
